FAERS Safety Report 10255100 (Version 1)
Quarter: 2014Q2

REPORT INFORMATION
  Report Type: Spontaneous
  Country: FR (occurrence: FR)
  Receive Date: 20140624
  Receipt Date: 20140624
  Transmission Date: 20141212
  Serious: Yes (Hospitalization)
  Sender: FDA-Public Use
  Company Number: FR-PFIZER INC-2014171516

PATIENT
  Age: 70 Year
  Sex: Female

DRUGS (8)
  1. CORDARONE [Suspect]
     Dosage: UNK
     Route: 048
     Dates: end: 201402
  2. ATENOLOL [Concomitant]
     Dosage: UNK
     Dates: start: 201308
  3. XARELTO [Concomitant]
     Dosage: UNK
     Dates: start: 201308
  4. FLECAINIDE [Concomitant]
     Dosage: UNK
     Dates: start: 201308
  5. VALSARTAN [Concomitant]
     Dosage: UNK
  6. PAROXETINE [Concomitant]
     Dosage: UNK
  7. RABEPRAZOLE [Concomitant]
     Dosage: UNK
  8. LASILIX [Concomitant]

REACTIONS (3)
  - Interstitial lung disease [Recovering/Resolving]
  - Cardiac failure [Unknown]
  - Purpura [Recovering/Resolving]
